FAERS Safety Report 7989708-9 (Version None)
Quarter: 2011Q4

REPORT INFORMATION
  Report Type: 
  Country: None (occurrence: None)
  Receive Date: 20111219
  Receipt Date: 20111206
  Transmission Date: 20120403
  Serious: Yes (Other)
  Sender: FDA-Public Use
  Company Number: US-ELI_LILLY_AND_COMPANY-US201109003512

PATIENT
  Age: 79 Year
  Sex: Female

DRUGS (14)
  1. DILAUDID [Concomitant]
  2. LORAZEPAM [Concomitant]
  3. IBUPROFEN [Concomitant]
  4. COMBIGAN [Concomitant]
  5. FORTEO [Suspect]
     Indication: OSTEOPOROSIS
     Dosage: UNK, UNKNOWN
     Route: 065
     Dates: start: 20090101, end: 20110912
  6. CALCIUM [Concomitant]
  7. OXYCODONE HCL [Concomitant]
  8. PROCRIT [Concomitant]
  9. VITAMIN D [Concomitant]
  10. PREDNISONE TAB [Concomitant]
  11. LIDOCAINE [Concomitant]
     Dosage: UNK, PRN
  12. SOTALOL HCL [Concomitant]
  13. THROAT [Concomitant]
  14. FLUTICASONE PROPIONATE [Concomitant]

REACTIONS (1)
  - BREAST CANCER IN SITU [None]
